FAERS Safety Report 20976859 (Version 3)
Quarter: 2023Q1

REPORT INFORMATION
  Report Type: Report from Study
  Country: DE (occurrence: None)
  Receive Date: 20220617
  Receipt Date: 20230112
  Transmission Date: 20230417
  Serious: Yes (Hospitalization)
  Sender: FDA-Public Use
  Company Number: DE-ROCHE-3116179

PATIENT
  Age: 64 Year
  Sex: Female
  Weight: 87 kg

DRUGS (14)
  1. ATEZOLIZUMAB [Suspect]
     Active Substance: ATEZOLIZUMAB
     Indication: Triple negative breast cancer
     Dosage: ON 05/MAY/2022, LAST DOSE IF ATEZOLIZUMAB WAS ADMINISTERED PRIOR TO SAE.
     Route: 041
     Dates: start: 20220119
  2. PACLITAXEL [Suspect]
     Active Substance: PACLITAXEL
     Indication: Triple negative breast cancer
     Dosage: ON 29/APR/2022, LAST DOSE OF PACLITAXEL WAS ADMINISTERED PRIOR TO SAE.
     Route: 042
     Dates: start: 20220119
  3. CARBOPLATIN [Suspect]
     Active Substance: CARBOPLATIN
     Indication: Triple negative breast cancer
     Dosage: ON 29/APR/2022, LAST DOSE OF CARBOPLATIN WAS ADMINISTERED PRIOR TO SAE.
     Route: 042
     Dates: start: 20220119
  4. EPIRUBICIN [Suspect]
     Active Substance: EPIRUBICIN
     Indication: Triple negative breast cancer
     Dosage: ON 05/MAY/2022, LAST DOSE OF EPIRUBICIN WAS ADMINISTERED PRIOR TO SAE}
     Route: 042
     Dates: start: 20220505
  5. CYCLOPHOSPHAMIDE [Suspect]
     Active Substance: CYCLOPHOSPHAMIDE
     Indication: Triple negative breast cancer
     Dosage: ON 05/MAY/2022, LAST DOSE OF CYCLOPHOSPHAMIDE WAS ADMINISTERED PRIOR TO SAE.
     Route: 042
     Dates: start: 20220505
  6. EUTHYROX [Concomitant]
     Active Substance: LEVOTHYROXINE SODIUM
     Dosage: 125MCG
  7. ESOMEPRAZOLE [Concomitant]
     Active Substance: ESOMEPRAZOLE
  8. ESCITALOPRAM [Concomitant]
     Active Substance: ESCITALOPRAM OXALATE
  9. CHOLECALCIFEROL [Concomitant]
     Active Substance: CHOLECALCIFEROL
  10. HYDROCORTISONE [Concomitant]
     Active Substance: HYDROCORTISONE
  11. FLUDROCORTISONE [Concomitant]
     Active Substance: FLUDROCORTISONE
  12. FAMOTIDINE [Concomitant]
     Active Substance: FAMOTIDINE
  13. METHYLPREDNISOLONE ACEPONATE [Concomitant]
     Active Substance: METHYLPREDNISOLONE ACEPONATE
  14. TORSEMIDE [Concomitant]
     Active Substance: TORSEMIDE

REACTIONS (1)
  - Febrile neutropenia [Recovered/Resolved]

NARRATIVE: CASE EVENT DATE: 20220512
